FAERS Safety Report 6099868-5 (Version None)
Quarter: 2009Q1

REPORT INFORMATION
  Report Type: 
  Country: None (occurrence: None)
  Receive Date: 20090303
  Receipt Date: 20090226
  Transmission Date: 20090719
  Serious: Yes (Death, Hospitalization, Other)
  Sender: FDA-Public Use
  Company Number: PHHY2008IE15964

PATIENT
  Sex: Male

DRUGS (7)
  1. CLOZARIL [Suspect]
     Indication: SCHIZOPHRENIA
     Dosage: UNK
     Route: 048
     Dates: start: 20040123
  2. HALOPERIDOL [Concomitant]
  3. VENLAFAXINE HCL [Concomitant]
  4. KWELLS [Concomitant]
  5. BIPERIDEN HYDROCHLORIDE TAB [Concomitant]
  6. DONEPEZIL HCL [Concomitant]
  7. DEXAMETHASONE [Concomitant]

REACTIONS (20)
  - ASTHENIA [None]
  - BRONCHIAL CARCINOMA [None]
  - CEREBRAL INFARCTION [None]
  - CONFUSIONAL STATE [None]
  - CONSTIPATION [None]
  - DEMENTIA [None]
  - FALL [None]
  - LUNG CANCER METASTATIC [None]
  - LUNG NEOPLASM [None]
  - MEMORY IMPAIRMENT [None]
  - METASTASES TO CENTRAL NERVOUS SYSTEM [None]
  - METASTASES TO LYMPH NODES [None]
  - NEGLECT OF PERSONAL APPEARANCE [None]
  - NON-SMALL CELL LUNG CANCER [None]
  - PNEUMONIA [None]
  - RADIOTHERAPY [None]
  - RESPIRATORY TRACT INFECTION [None]
  - SOMNOLENCE [None]
  - TACHYCARDIA [None]
  - WEIGHT DECREASED [None]
